FAERS Safety Report 7993518-6 (Version None)
Quarter: 2011Q4

REPORT INFORMATION
  Report Type: 
  Country: None (occurrence: None)
  Receive Date: 20111219
  Receipt Date: 20110901
  Transmission Date: 20120403
  Serious: No
  Sender: FDA-Public Use
  Company Number: US-ASTRAZENECA-2011SE37309

PATIENT
  Sex: Female

DRUGS (4)
  1. HTN MEDICATION [Concomitant]
     Indication: HYPERTENSION
  2. CRESTOR [Suspect]
     Indication: HYPERCHOLESTEROLAEMIA
     Route: 048
     Dates: start: 20110614
  3. HRT [Concomitant]
     Indication: HORMONE REPLACEMENT THERAPY
  4. VITAMIN TAB [Concomitant]

REACTIONS (4)
  - MYALGIA [None]
  - FATIGUE [None]
  - SOMNOLENCE [None]
  - DEPRESSION [None]
